FAERS Safety Report 5638343-6 (Version None)
Quarter: 2008Q1

REPORT INFORMATION
  Report Type: 
  Country: None (occurrence: None)
  Receive Date: 20080131
  Receipt Date: 20071130
  Transmission Date: 20080703
  Serious: No
  Sender: FDA-Public Use
  Company Number: 163-21880-07111706

PATIENT
  Age: 62 Year
  Sex: Female

DRUGS (17)
  1. REVLIMID [Suspect]
     Indication: MULTIPLE MYELOMA
     Dosage: 25 MG, 1 IN 1 D, ORAL
     Route: 048
     Dates: start: 20070615, end: 20070905
  2. AVAPRO [Concomitant]
  3. PROTONIX [Concomitant]
  4. PRAVACHOL [Concomitant]
  5. ZETIA [Concomitant]
  6. HYDROCODONE (HYDROCODONE) [Concomitant]
  7. ANTIBIOTICS (ANTIBIOTICS) [Concomitant]
  8. LEVAQUIN [Concomitant]
  9. DIFLUCAN [Concomitant]
  10. DEXAMETHASONE TAB [Concomitant]
  11. ASPIRIN [Concomitant]
  12. CALCIUM C (CALCIUM C) [Concomitant]
  13. VITAMIN D [Concomitant]
  14. VITAMIN E [Concomitant]
  15. VITAMIN B12 [Concomitant]
  16. MULTIVITAMIN [Concomitant]
  17. BACTRIM [Concomitant]

REACTIONS (1)
  - OEDEMA PERIPHERAL [None]
